FAERS Safety Report 4633553-9 (Version None)
Quarter: 2005Q2

REPORT INFORMATION
  Report Type: 
  Country: None (occurrence: None)
  Receive Date: 20050331
  Receipt Date: 20041222
  Transmission Date: 20051028
  Serious: Yes (Other)
  Sender: FDA-Public Use
  Company Number: 200416269BCC

PATIENT
  Age: 39 Year
  Sex: Male
  Weight: 79.3795 kg

DRUGS (1)
  1. ALEVE [Suspect]
     Dosage: 440 MG ONCE ORAL
     Route: 048
     Dates: start: 20041201, end: 20040101

REACTIONS (7)
  - DYSPNOEA [None]
  - HYPERHIDROSIS [None]
  - HYPERSENSITIVITY [None]
  - MIGRAINE [None]
  - PARAESTHESIA [None]
  - TREMOR [None]
  - URTICARIA [None]
